FAERS Safety Report 4860479-8 (Version None)
Quarter: 2005Q4

REPORT INFORMATION
  Report Type: 
  Country: None (occurrence: None)
  Receive Date: 20051215
  Receipt Date: 20051205
  Transmission Date: 20060501
  Serious: No
  Sender: FDA-Public Use
  Company Number: APP200500521

PATIENT
  Age: 77 Year
  Sex: Female

DRUGS (4)
  1. PAMIDRONATE DISODIUM [Suspect]
     Indication: OSTEOPOROSIS
     Dosage: (90 MG, 2ND DOSE), INTRAVENOUS
     Route: 042
     Dates: end: 20050901
  2. ATENOLOL [Concomitant]
  3. LETROZOLE (LETROZOLE) [Concomitant]
  4. CETIRIZINE HCL [Concomitant]

REACTIONS (1)
  - ANAPHYLACTIC REACTION [None]
